FAERS Safety Report 8841246 (Version 4)
Quarter: 2012Q4

REPORT INFORMATION
  Report Type: 
  Country: US (occurrence: US)
  Receive Date: 20121015
  Receipt Date: 20121203
  Transmission Date: 20130627
  Serious: Yes (Other)
  Sender: FDA-Public Use
  Company Number: US-JNJFOC-20121000748

PATIENT
  Age: 27 Year
  Sex: Female

DRUGS (2)
  1. REMICADE [Suspect]
     Indication: COLITIS ULCERATIVE
     Route: 042
     Dates: start: 2010
  2. 6-MP [Concomitant]
     Route: 048

REACTIONS (2)
  - Lymphoma [Unknown]
  - Pancreatitis [Unknown]
